FAERS Safety Report 23712383 (Version 2)
Quarter: 2024Q2

REPORT INFORMATION
  Report Type: Report from Study
  Country: JP (occurrence: JP)
  Receive Date: 20240405
  Receipt Date: 20240510
  Transmission Date: 20240715
  Serious: Yes (Life-Threatening, Other)
  Sender: FDA-Public Use
  Company Number: JP-BAUSCH-BL-2023-019313

PATIENT
  Age: 44 Year
  Sex: Male
  Weight: 71.4 kg

DRUGS (11)
  1. DEMSER [Suspect]
     Active Substance: METYROSINE
     Indication: Blood catecholamines
     Route: 048
     Dates: start: 20230721, end: 20230724
  2. DEMSER [Suspect]
     Active Substance: METYROSINE
     Route: 048
     Dates: start: 20230725, end: 20230728
  3. DEMSER [Suspect]
     Active Substance: METYROSINE
     Route: 048
     Dates: start: 20230729, end: 20230802
  4. DEMSER [Suspect]
     Active Substance: METYROSINE
     Route: 048
     Dates: start: 20230803, end: 20230806
  5. DEMSER [Suspect]
     Active Substance: METYROSINE
     Route: 048
     Dates: start: 20230808, end: 20230810
  6. DEMSER [Suspect]
     Active Substance: METYROSINE
     Route: 048
     Dates: start: 20230811, end: 20230813
  7. DEMSER [Suspect]
     Active Substance: METYROSINE
     Route: 048
     Dates: start: 20230814, end: 20230817
  8. DEMSER [Suspect]
     Active Substance: METYROSINE
     Dosage: 500 MG IN THE MORNING, 250 MG IN THE AFTERNOON, 250 MG IN THE EVENING, AND 250 MG BEFORE BEDTIME.
     Route: 048
     Dates: start: 20230818, end: 20230831
  9. DOXAZOSIN [Concomitant]
     Active Substance: DOXAZOSIN MESYLATE
     Indication: Product used for unknown indication
     Route: 065
     Dates: start: 20230718, end: 20230901
  10. SODIUM CHLORIDE [Concomitant]
     Active Substance: SODIUM CHLORIDE
     Indication: Product used for unknown indication
     Route: 065
     Dates: start: 20230719, end: 20230831
  11. MAGNESIUM OXIDE [Concomitant]
     Active Substance: MAGNESIUM OXIDE
     Indication: Product used for unknown indication
     Route: 065
     Dates: start: 20230720, end: 20230831

REACTIONS (2)
  - Ileus [Recovered/Resolved]
  - Enterocolitis bacterial [Recovered/Resolved]

NARRATIVE: CASE EVENT DATE: 20230807
